FAERS Safety Report 7322503-2 (Version None)
Quarter: 2011Q1

REPORT INFORMATION
  Report Type: 
  Country: None (occurrence: None)
  Receive Date: 20110301
  Receipt Date: 20110214
  Transmission Date: 20110831
  Serious: Yes (Hospitalization)
  Sender: FDA-Public Use
  Company Number: US-BAYER-200937780NA

PATIENT
  Sex: Female
  Weight: 152 kg

DRUGS (13)
  1. SINGULAIR [Concomitant]
     Indication: BRONCHITIS
     Dosage: 10 MG (DAILY DOSE), ,
  2. ADVAIR DISKUS 100/50 [Concomitant]
     Indication: BRONCHITIS
  3. CORTICOSTEROIDS [Concomitant]
     Indication: BRONCHITIS
  4. YAZ [Suspect]
     Indication: ORAL CONTRACEPTION
     Route: 048
     Dates: start: 20071012, end: 20080815
  5. NAPROSYN [Concomitant]
  6. YASMIN [Suspect]
     Indication: PRODUCT USED FOR UNKNOWN INDICATION
  7. ANTIBIOTICS [Concomitant]
     Indication: BRONCHITIS
     Route: 048
  8. VICODIN [Concomitant]
     Indication: PAIN
     Route: 048
  9. ZYRTEC [Concomitant]
     Dosage: DAILY
  10. FLEXERIL [Concomitant]
     Indication: PAIN
  11. PREDNISONE [Concomitant]
     Dosage: 40 MG (DAILY DOSE), ,
  12. GABAPENTIN [Concomitant]
     Indication: NEURALGIA
     Dosage: DAILY
  13. AVELOX [Concomitant]
     Dosage: 400 MG (DAILY DOSE), ,

REACTIONS (10)
  - PULMONARY EMBOLISM [None]
  - PALPITATIONS [None]
  - DYSPNOEA [None]
  - HYPOAESTHESIA ORAL [None]
  - BRONCHITIS [None]
  - MUSCLE SPASMS [None]
  - PARAESTHESIA [None]
  - COUGH [None]
  - FATIGUE [None]
  - HYPOXIA [None]
